FAERS Safety Report 7115982-7 (Version None)
Quarter: 2010Q4

REPORT INFORMATION
  Report Type: 
  Country: None (occurrence: None)
  Receive Date: 20101122
  Receipt Date: 20101111
  Transmission Date: 20110411
  Serious: Yes (Death, Life-Threatening, Hospitalization)
  Sender: FDA-Public Use
  Company Number: GB-GENZYME-CLOF-1001281

PATIENT
  Sex: Female
  Weight: 52 kg

DRUGS (6)
  1. EVOLTRA [Suspect]
     Indication: ACUTE MYELOID LEUKAEMIA
     Dosage: 30 MG, QD
     Route: 042
     Dates: start: 20101014, end: 20101016
  2. MEROPENEM [Concomitant]
     Dosage: UNK
     Route: 065
  3. METOCLOPRAMIDE [Concomitant]
     Dosage: UNK
     Route: 065
  4. OMEPRAZOLE [Concomitant]
     Dosage: UNK
     Route: 065
  5. SALBUTAMOL [Concomitant]
     Dosage: UNK
     Route: 065
  6. SODIUM POLYSTYRENE SULFONATE [Concomitant]
     Dosage: UNK
     Route: 065

REACTIONS (5)
  - PANCYTOPENIA [None]
  - PNEUMONIA [None]
  - RENAL FAILURE ACUTE [None]
  - SEPSIS [None]
  - TUMOUR LYSIS SYNDROME [None]
